FAERS Safety Report 25907347 (Version 2)
Quarter: 2025Q4

REPORT INFORMATION
  Report Type: Spontaneous
  Country: RU (occurrence: None)
  Receive Date: 20251010
  Receipt Date: 20251031
  Transmission Date: 20260118
  Serious: Yes (Hospitalization, Other)
  Sender: ORGANON
  Company Number: RU-ORGANON-O2510RUS000442

PATIENT
  Age: 26 Year
  Sex: Female
  Weight: 55 kg

DRUGS (1)
  1. ETONOGESTREL [Suspect]
     Active Substance: ETONOGESTREL
     Dosage: 1 IMPLANT
     Dates: start: 20250226, end: 20250820

REACTIONS (7)
  - Liver injury [Recovered/Resolved]
  - Subcapsular hepatic haematoma [Unknown]
  - Vaginal haemorrhage [Recovered/Resolved]
  - Haemoperitoneum [Unknown]
  - Blood loss anaemia [Unknown]
  - Pneumothorax [Unknown]
  - Rhinorrhoea [Unknown]

NARRATIVE: CASE EVENT DATE: 20250101
